FAERS Safety Report 19124900 (Version 2)
Quarter: 2021Q2

REPORT INFORMATION
  Report Type: Spontaneous
  Country: HU (occurrence: HU)
  Receive Date: 20210412
  Receipt Date: 20210412
  Transmission Date: 20210717
  Serious: Yes (Hospitalization)
  Sender: FDA-Public Use
  Company Number: NVSC2021HU068676

PATIENT
  Age: 46 Year
  Sex: Female
  Weight: 50 kg

DRUGS (3)
  1. TAFINLAR [Suspect]
     Active Substance: DABRAFENIB MESYLATE
     Dosage: 75 MG (2 X 2)
     Route: 065
  2. TAFINLAR [Suspect]
     Active Substance: DABRAFENIB MESYLATE
     Indication: MALIGNANT MELANOMA
     Dosage: 150 MG (2 X 2)
     Route: 048
     Dates: start: 20190829, end: 20200723
  3. MEKINIST [Suspect]
     Active Substance: TRAMETINIB DIMETHYL SULFOXIDE
     Indication: MALIGNANT MELANOMA
     Dosage: 2 MG (1 X 1)
     Route: 048
     Dates: start: 20190829, end: 20200723

REACTIONS (7)
  - Loss of consciousness [Recovered/Resolved]
  - Erythema nodosum [Unknown]
  - Hyperkeratosis [Recovered/Resolved]
  - Skin papilloma [Recovered/Resolved]
  - Pyrexia [Recovered/Resolved]
  - Tooth disorder [Recovered/Resolved]
  - Chapped lips [Recovered/Resolved]

NARRATIVE: CASE EVENT DATE: 2019
